FAERS Safety Report 8433852 (Version 8)
Quarter: 2012Q4

REPORT INFORMATION
  Report Type: 
  Country: IE (occurrence: IE)
  Receive Date: 20120229
  Receipt Date: 20121003
  Transmission Date: 20130627
  Serious: Yes (Other)
  Sender: FDA-Public Use
  Company Number: PHFR2012IE001414

PATIENT
  Age: 58 Year
  Sex: Female
  Weight: 86 kg

DRUGS (9)
  1. CLOZARIL [Suspect]
     Indication: SCHIZOPHRENIA
     Dosage: 600 mg, (250 mg mane and 350 mg nocte)
     Route: 048
     Dates: start: 20110331
  2. AMISULPRIDE [Suspect]
     Indication: PSYCHOTIC DISORDER
     Dosage: 200 mg, BID
  3. AMISULPRIDE [Suspect]
     Dosage: 200 mg, (reduced by 200 mg)
     Dates: start: 20120301
  4. NEXIUM [Concomitant]
     Indication: GASTRITIS
     Dosage: 40 mg, daily mane
     Route: 048
  5. NU-SEALS ASPIRIN [Concomitant]
     Dosage: 75 mg, daily Mane
     Route: 048
  6. LIPITOR [Concomitant]
     Indication: BLOOD CHOLESTEROL INCREASED
     Dosage: 20 mg, daily nocte
     Route: 048
  7. VALPROATE SODIUM [Concomitant]
     Indication: AFFECTIVE DISORDER
     Dosage: 500 mg, daily nocte
     Route: 048
  8. KWELLS [Concomitant]
     Indication: SALIVARY HYPERSECRETION
     Dosage: 300 mg, QD (night)
     Route: 048
  9. LACTULOSE [Concomitant]
     Dosage: 10 ml, BID (BD or PRN)

REACTIONS (8)
  - Chronic obstructive pulmonary disease [Not Recovered/Not Resolved]
  - Arthritis [Not Recovered/Not Resolved]
  - Blood prolactin increased [Not Recovered/Not Resolved]
  - Gastritis [Recovering/Resolving]
  - Blood cholesterol increased [Recovered/Resolved]
  - Blood creatine phosphokinase increased [Not Recovered/Not Resolved]
  - Vein disorder [Not Recovered/Not Resolved]
  - Pain in extremity [Recovered/Resolved]
